FAERS Safety Report 21955676 (Version 6)
Quarter: 2023Q1

REPORT INFORMATION
  Report Type: Spontaneous
  Country: US (occurrence: US)
  Receive Date: 20230206
  Receipt Date: 20230222
  Transmission Date: 20230417
  Serious: No
  Sender: FDA-Public Use
  Company Number: US-AMGEN-USASP2023015999

PATIENT
  Sex: Female

DRUGS (5)
  1. NEULASTA [Suspect]
     Active Substance: PEGFILGRASTIM
     Indication: Neutropenia
     Dosage: UNK
     Route: 065
     Dates: start: 20230126
  2. DOCETAXEL [Concomitant]
     Active Substance: DOCETAXEL
  3. CARBOPLATIN [Concomitant]
     Active Substance: CARBOPLATIN
  4. TRASTUZUMAB [Concomitant]
     Active Substance: TRASTUZUMAB
  5. PERTUZUMAB [Concomitant]
     Active Substance: PERTUZUMAB

REACTIONS (2)
  - Device delivery system issue [Unknown]
  - Device use error [Unknown]

NARRATIVE: CASE EVENT DATE: 20230127
